FAERS Safety Report 5926187-7 (Version None)
Quarter: 2008Q4

REPORT INFORMATION
  Report Type: 
  Country: None (occurrence: None)
  Receive Date: 20081017
  Receipt Date: 20081001
  Transmission Date: 20090506
  Serious: Yes (Hospitalization)
  Sender: FDA-Public Use
  Company Number: 034671

PATIENT
  Age: 40 Year
  Sex: Female
  Weight: 83.9 kg

DRUGS (2)
  1. ESTRADIOL [Suspect]
     Indication: HYSTERECTOMY
     Dosage: 2 MG, QD, ORAL; 1 MG, QD, ORAL
     Route: 048
     Dates: end: 20080929
  2. ESTRADIOL [Suspect]
     Indication: HYSTERECTOMY
     Dosage: 2 MG, QD, ORAL; 1 MG, QD, ORAL
     Route: 048
     Dates: start: 20080920

REACTIONS (5)
  - DYSPNOEA [None]
  - HYPERSENSITIVITY [None]
  - PHARYNGEAL OEDEMA [None]
  - SWELLING FACE [None]
  - SWOLLEN TONGUE [None]
